FAERS Safety Report 5211956-1 (Version None)
Quarter: 2007Q1

REPORT INFORMATION
  Report Type: 
  Country: None (occurrence: None)
  Receive Date: 20070111
  Receipt Date: 20061228
  Transmission Date: 20070707
  Serious: Yes (Hospitalization)
  Sender: FDA-Public Use
  Company Number: 234648

PATIENT
  Age: 53 Year
  Sex: Male
  Weight: 81 kg

DRUGS (10)
  1. AVASTIN [Suspect]
     Indication: NON-SMALL CELL LUNG CANCER
     Dosage: 1215 MG, Q3W, INTRAVENOUS
     Route: 042
     Dates: start: 20061214
  2. GEMCITABINE [Suspect]
     Indication: NON-SMALL CELL LUNG CANCER
     Dosage: 2440 MG, INTRAVENOUS
     Route: 042
     Dates: start: 20061214
  3. CISPLATIN [Suspect]
     Indication: NON-SMALL CELL LUNG CANCER
     Dosage: 156 MG, INTRAVENOUS
     Route: 042
     Dates: start: 20061214
  4. ACETAMINOPHEN [Concomitant]
  5. ENDONE (OXYCODONE HYDROCHLORIDE) [Concomitant]
  6. PROCHLORPERAZINE [Concomitant]
  7. EMEND [Concomitant]
  8. ONDANSETRON HCL [Concomitant]
  9. COLOXYL (DOCUSATE SODIUM) [Concomitant]
  10. COLOXYL WITH SENNA (DOCUSATE SODIUM, SENNOSIDES) [Concomitant]

REACTIONS (15)
  - ALANINE AMINOTRANSFERASE INCREASED [None]
  - ASPARTATE AMINOTRANSFERASE INCREASED [None]
  - BLOOD ALKALINE PHOSPHATASE INCREASED [None]
  - BLOOD LACTATE DEHYDROGENASE INCREASED [None]
  - CULTURE URINE POSITIVE [None]
  - GAMMA-GLUTAMYLTRANSFERASE INCREASED [None]
  - HAEMATOCRIT DECREASED [None]
  - HAEMOGLOBIN DECREASED [None]
  - LYMPHOCYTE COUNT DECREASED [None]
  - PLATELET COUNT DECREASED [None]
  - PYREXIA [None]
  - RASH [None]
  - RED BLOOD CELL COUNT DECREASED [None]
  - STREPTOCOCCAL INFECTION [None]
  - URINE SODIUM DECREASED [None]
